FAERS Safety Report 5473954-2 (Version None)
Quarter: 2007Q3

REPORT INFORMATION
  Report Type: 
  Country: None (occurrence: None)
  Receive Date: 20070831
  Receipt Date: 20070612
  Transmission Date: 20080115
  Serious: No
  Sender: FDA-Public Use
  Company Number: 232088

PATIENT
  Age: 75 Year
  Sex: Male
  Weight: 90.7 kg

DRUGS (12)
  1. LUCENTIS [Suspect]
     Indication: MACULAR DEGENERATION
     Dosage: 0.5 MG, SINGLE, INTRAVITREAL
     Dates: start: 20061101
  2. TESTOSTERONE (TESTOSTERONE) CAPSULE [Concomitant]
  3. BETOPTIC [Concomitant]
  4. ALPHAGAN P [Concomitant]
  5. XALANTAN EYE GTTS. (LATANOPROST) [Concomitant]
  6. LEXOTAN (BROMAZEPAM) [Concomitant]
  7. RANITIDINE [Concomitant]
  8. MULTIVITAMIN (MULTIVITAMINS NOS) [Concomitant]
  9. VITAMIN C (ASCORVIC ACID) [Concomitant]
  10. VITAMIN E [Concomitant]
  11. ZINC (ZINC NOS) [Concomitant]
  12. LUTEIN (LUTEIN) [Concomitant]

REACTIONS (3)
  - EYE IRRITATION [None]
  - OCULAR HYPERAEMIA [None]
  - VISUAL ACUITY REDUCED [None]
